FAERS Safety Report 23177796 (Version 2)
Quarter: 2023Q4

REPORT INFORMATION
  Report Type: Report from Study
  Country: JP (occurrence: JP)
  Receive Date: 20231113
  Receipt Date: 20231115
  Transmission Date: 20240109
  Serious: Yes (Other)
  Sender: FDA-Public Use
  Company Number: JP-ALXN-A202207889AA

PATIENT
  Age: 42 Year
  Sex: Female
  Weight: 54.2 kg

DRUGS (10)
  1. STRENSIQ [Suspect]
     Active Substance: ASFOTASE ALFA
     Indication: Hypophosphatasia
     Dosage: 2 MG/KG, TIW
     Route: 058
     Dates: start: 20201218, end: 20201224
  2. STRENSIQ [Suspect]
     Active Substance: ASFOTASE ALFA
     Dosage: 0.5 MG/KG, SIX TIMES/WEEK
     Route: 058
     Dates: start: 20201225, end: 20210112
  3. STRENSIQ [Suspect]
     Active Substance: ASFOTASE ALFA
     Dosage: 0.7 MG/KG, SIX TIMES/WEEK
     Route: 058
     Dates: start: 20210113, end: 20210617
  4. STRENSIQ [Suspect]
     Active Substance: ASFOTASE ALFA
     Dosage: 1 MG/KG, SIX TIMES/WEEK
     Route: 058
  5. STRENSIQ [Suspect]
     Active Substance: ASFOTASE ALFA
     Dosage: 0.7 MG/KG, SIX TIMES/WEEK
     Route: 058
     Dates: start: 20210915
  6. CALONAL [Concomitant]
     Active Substance: ACETAMINOPHEN
     Indication: Product used for unknown indication
     Dosage: 300 MG, TID
     Route: 048
  7. NAIXAN                             /00256201/ [Concomitant]
     Indication: Pain
     Dosage: 100 MG, TID
     Route: 048
  8. NEXIUM [Concomitant]
     Active Substance: ESOMEPRAZOLE MAGNESIUM
     Indication: Product used for unknown indication
     Dosage: 20 MG, QD
     Route: 048
  9. ZOPICLONE [Concomitant]
     Active Substance: ZOPICLONE
     Indication: Product used for unknown indication
     Dosage: 7.5 MG, QHS
     Route: 048
  10. HYALURONATE SODIUM [Concomitant]
     Active Substance: HYALURONATE SODIUM
     Indication: Product used for unknown indication
     Dosage: UNK, QID
     Route: 047

REACTIONS (3)
  - Osteochondrosis [Recovering/Resolving]
  - Menstruation irregular [Recovered/Resolved]
  - Cartilage injury [Recovering/Resolving]

NARRATIVE: CASE EVENT DATE: 20220209
